FAERS Safety Report 15799717 (Version 1)
Quarter: 2019Q1

REPORT INFORMATION
  Report Type: Spontaneous
  Country: JP (occurrence: JP)
  Receive Date: 20190108
  Receipt Date: 20190108
  Transmission Date: 20190417
  Serious: Yes (Other)
  Sender: FDA-Public Use
  Company Number: JP-MYLANLABS-2019M1000757

PATIENT
  Age: 51 Year
  Sex: Female

DRUGS (8)
  1. METHYLPREDNISOLONE. [Suspect]
     Active Substance: METHYLPREDNISOLONE
     Indication: DERMATOMYOSITIS
     Dosage: PULSE
     Route: 042
  2. CICLOSPORIN [Suspect]
     Active Substance: CYCLOSPORINE
     Indication: PRODUCT USED FOR UNKNOWN INDICATION
     Route: 065
  3. METHYLPREDNISOLONE. [Suspect]
     Active Substance: METHYLPREDNISOLONE
     Indication: INTERSTITIAL LUNG DISEASE
     Dosage: 125 MILLIGRAM
     Route: 065
  4. METHYLPREDNISOLONE. [Suspect]
     Active Substance: METHYLPREDNISOLONE
     Dosage: PULSE; WAS FOLLOWED FOR 3 DAYS
     Route: 042
  5. CYCLOPHOSPHAMIDE. [Suspect]
     Active Substance: CYCLOPHOSPHAMIDE
     Indication: INTERSTITIAL LUNG DISEASE
     Dosage: 500 MG/M2
     Route: 042
  6. PREDNISOLONE. [Suspect]
     Active Substance: PREDNISOLONE
     Indication: DERMATOMYOSITIS
     Dosage: 80 MILLIGRAM, QD
     Route: 048
  7. CYCLOPHOSPHAMIDE. [Suspect]
     Active Substance: CYCLOPHOSPHAMIDE
     Indication: DERMATOMYOSITIS
  8. PREDNISOLONE. [Suspect]
     Active Substance: PREDNISOLONE
     Indication: INTERSTITIAL LUNG DISEASE
     Dosage: 60 MILLIGRAM, QD
     Route: 048

REACTIONS (3)
  - Herpes zoster [Recovered/Resolved]
  - Pneumonia aspiration [Recovered/Resolved]
  - Systemic candida [Recovered/Resolved]
